FAERS Safety Report 5875422-2 (Version None)
Quarter: 2008Q3

REPORT INFORMATION
  Report Type: 
  Country: None (occurrence: None)
  Receive Date: 20080909
  Receipt Date: 20080902
  Transmission Date: 20090109
  Serious: Yes (Other)
  Sender: FDA-Public Use
  Company Number: GB-ABBOTT-08P-167-0462068-00

PATIENT
  Sex: Female
  Weight: 115.2 kg

DRUGS (3)
  1. REDUCTIL 10MG [Suspect]
     Indication: WEIGHT CONTROL
     Route: 048
     Dates: start: 20080606, end: 20080706
  2. REDUCTIL 10MG [Suspect]
     Indication: OBESITY
  3. IBUPROFEN [Concomitant]
     Indication: PAIN IN EXTREMITY
     Route: 048
     Dates: start: 20080606

REACTIONS (5)
  - DEPRESSED MOOD [None]
  - DEPRESSION [None]
  - EUPHORIC MOOD [None]
  - INCREASED APPETITE [None]
  - MOOD ALTERED [None]
